FAERS Safety Report 6271743-2 (Version None)
Quarter: 2009Q3

REPORT INFORMATION
  Report Type: 
  Country: None (occurrence: None)
  Receive Date: 20090717
  Receipt Date: 20090603
  Transmission Date: 20100115
  Serious: Yes (Hospitalization)
  Sender: FDA-Public Use
  Company Number: DE-AMGEN-US350521

PATIENT
  Sex: Female
  Weight: 96 kg

DRUGS (3)
  1. ENBREL [Suspect]
     Indication: PSORIATIC ARTHROPATHY
     Route: 058
     Dates: start: 20090415, end: 20090501
  2. PREDNISOLONE [Suspect]
     Indication: PSORIATIC ARTHROPATHY
     Route: 048
     Dates: start: 20090101
  3. CELEBREX [Concomitant]
     Route: 048
     Dates: start: 20071201

REACTIONS (2)
  - ABDOMINAL WALL DISORDER [None]
  - CHOLELITHIASIS [None]
